FAERS Safety Report 19846694 (Version 1)
Quarter: 2021Q3

REPORT INFORMATION
  Report Type: Spontaneous
  Country: FR (occurrence: FR)
  Receive Date: 20210917
  Receipt Date: 20210917
  Transmission Date: 20211014
  Serious: Yes (Hospitalization)
  Sender: FDA-Public Use
  Company Number: FR-ACCORD-238725

PATIENT
  Age: 64 Year
  Sex: Male
  Weight: 65 kg

DRUGS (10)
  1. LEVETIRACETAM ACCORD [Suspect]
     Active Substance: LEVETIRACETAM
     Indication: EPILEPSY
     Dosage: 500MG MORNING AND EVENING
     Route: 048
     Dates: start: 20210701, end: 20210729
  2. ESCITALOPRAM [Concomitant]
     Active Substance: ESCITALOPRAM OXALATE
  3. INEXIUM [Suspect]
     Active Substance: ESOMEPRAZOLE
     Indication: PROPHYLAXIS AGAINST GASTROINTESTINAL ULCER
     Dosage: 1CP EVENING
     Route: 048
     Dates: start: 20210701, end: 20210729
  4. ADELPHAN ESIDREX [Concomitant]
  5. CORTANCYL [Concomitant]
     Active Substance: PREDNISONE
  6. IMOVANE [Concomitant]
     Active Substance: ZOPICLONE
  7. OPDIVO [Suspect]
     Active Substance: NIVOLUMAB
     Indication: METASTATIC MALIGNANT MELANOMA
     Dosage: 10 MG / ML
     Route: 042
     Dates: start: 20210713, end: 20210713
  8. MICROPAKINE [Suspect]
     Active Substance: VALPROATE SODIUM
     Indication: EPILEPSY
     Dosage: 500 MG MORNING AND EVENING
     Route: 048
     Dates: start: 20210701, end: 20210729
  9. APROVEL [Concomitant]
     Active Substance: IRBESARTAN
  10. TEMESTA [Concomitant]

REACTIONS (2)
  - Rash maculo-papular [Recovering/Resolving]
  - Hepatocellular injury [Recovering/Resolving]

NARRATIVE: CASE EVENT DATE: 20210726
